FAERS Safety Report 8443449-2 (Version None)
Quarter: 2012Q2

REPORT INFORMATION
  Report Type: 
  Country: None (occurrence: None)
  Receive Date: 20120612
  Receipt Date: 20120612
  Transmission Date: 20120825
  Serious: No
  Sender: FDA-Public Use
  Company Number: None

PATIENT

DRUGS (2)
  1. HEAPRIN SODIUM [Suspect]
     Dosage: SOLUTION INJECTION 10UNITS/ML, 3ML
  2. HEAPRIN SODIUM [Suspect]
     Dosage: INJECTION

REACTIONS (2)
  - DRUG DISPENSING ERROR [None]
  - PRODUCT BARCODE ISSUE [None]
